FAERS Safety Report 8772621 (Version 1)
Quarter: 2012Q4

REPORT INFORMATION
  Report Type: 
  Country: GB (occurrence: GB)
  Receive Date: 20120905
  Receipt Date: 20120905
  Transmission Date: 20130627
  Serious: Yes (Disabling, Other)
  Sender: FDA-Public Use
  Company Number: GB-TEVA-356081ISR

PATIENT
  Age: 38 Year
  Sex: Female
  Weight: 69.85 kg

DRUGS (1)
  1. VENLAFAXINE [Suspect]
     Indication: DEPRESSION
     Dosage: 150 Milligram Daily;
     Route: 048
     Dates: start: 20120401

REACTIONS (4)
  - Ileus paralytic [Unknown]
  - Change of bowel habit [Unknown]
  - Appetite disorder [Unknown]
  - Dyspepsia [Unknown]
